FAERS Safety Report 8473740-5 (Version None)
Quarter: 2012Q2

REPORT INFORMATION
  Report Type: 
  Country: None (occurrence: None)
  Receive Date: 20120628
  Receipt Date: 20111026
  Transmission Date: 20120825
  Serious: Yes (Death)
  Sender: FDA-Public Use
  Company Number: US-MYLANLABS-2011S1021137

PATIENT
  Sex: Male

DRUGS (12)
  1. LEVEMIR [Concomitant]
     Route: 058
  2. NEXIUM [Concomitant]
     Route: 048
  3. NAPROXEN [Concomitant]
     Route: 048
  4. DIAZEPAM [Concomitant]
     Route: 048
  5. CLOZAPINE [Suspect]
  6. DIAZEPAM [Concomitant]
     Route: 048
  7. BENAZEPRIL HCL W/HYDROCHLOROTHIAZIDE [Concomitant]
     Dosage: 10/12.5MG
     Route: 048
  8. MULTIVITAMINES WITH IRON /02170101/ [Concomitant]
     Route: 048
  9. LOVAZA [Concomitant]
     Route: 048
  10. CLOZAPINE [Suspect]
     Route: 048
  11. LOTRISONE [Concomitant]
     Route: 061
  12. ASCORBIC ACID [Concomitant]
     Route: 048

REACTIONS (1)
  - DEATH [None]
